FAERS Safety Report 9882294 (Version 1)
Quarter: 2014Q1

REPORT INFORMATION
  Report Type: Spontaneous
  Country: JP (occurrence: JP)
  Receive Date: 20140207
  Receipt Date: 20140207
  Transmission Date: 20141002
  Serious: Yes (Other)
  Sender: FDA-Public Use
  Company Number: JP-SA-2014SA012720

PATIENT
  Sex: Male

DRUGS (3)
  1. LASIX [Suspect]
     Indication: PRODUCT USED FOR UNKNOWN INDICATION
     Route: 048
  2. LASIX [Suspect]
     Indication: PRODUCT USED FOR UNKNOWN INDICATION
     Route: 048
  3. ALDACTONE [Concomitant]

REACTIONS (2)
  - Glomerular filtration rate decreased [Unknown]
  - Blood creatinine increased [Unknown]
